FAERS Safety Report 16633634 (Version 2)
Quarter: 2019Q3

REPORT INFORMATION
  Report Type: Report from Study
  Country: US (occurrence: US)
  Receive Date: 20190725
  Receipt Date: 20190801
  Transmission Date: 20191004
  Serious: Yes (Hospitalization, Other)
  Sender: FDA-Public Use
  Company Number: US-BRISTOL-MYERS SQUIBB COMPANY-BMS-2019-071944

PATIENT
  Age: 66 Year
  Sex: Male
  Weight: 113.38 kg

DRUGS (3)
  1. RELATLIMAB [Suspect]
     Active Substance: RELATLIMAB
     Indication: GASTROOESOPHAGEAL CANCER
     Dosage: UNK
     Route: 042
  2. LEVAQUIN [Concomitant]
     Active Substance: LEVOFLOXACIN
     Indication: INFECTION
     Dosage: 750 MILLIGRAM
     Route: 048
     Dates: start: 20190718, end: 20190724
  3. NIVOLUMAB [Suspect]
     Active Substance: NIVOLUMAB
     Indication: GASTROOESOPHAGEAL CANCER
     Dosage: UNK
     Route: 042

REACTIONS (2)
  - Asthenia [Recovered/Resolved]
  - Anuria [Recovered/Resolved]

NARRATIVE: CASE EVENT DATE: 20190718
